FAERS Safety Report 4798118-7 (Version None)
Quarter: 2005Q4

REPORT INFORMATION
  Report Type: 
  Country: None (occurrence: None)
  Receive Date: 20051014
  Receipt Date: 20051004
  Transmission Date: 20060501
  Serious: Yes (Other)
  Sender: FDA-Public Use
  Company Number: MY-BOEHRINGER INGELHEIM PHARMACEUTICALS, INC.-2005-BP-17677SG

PATIENT
  Sex: Female

DRUGS (1)
  1. TIOTROPIUM INH. POWDER [Suspect]
     Route: 055

REACTIONS (1)
  - LUNG NEOPLASM MALIGNANT [None]
